FAERS Safety Report 5834924-5 (Version None)
Quarter: 2008Q3

REPORT INFORMATION
  Report Type: 
  Country: None (occurrence: None)
  Receive Date: 20080804
  Receipt Date: 20080717
  Transmission Date: 20090109
  Serious: Yes (Hospitalization)
  Sender: FDA-Public Use
  Company Number: 8029753

PATIENT
  Age: 9 Year
  Sex: Male
  Weight: 26.8 kg

DRUGS (4)
  1. EQUASYM [Suspect]
     Indication: ATTENTION DEFICIT/HYPERACTIVITY DISORDER
     Dosage: 20 MG 1/D PO
     Route: 048
     Dates: start: 20071119
  2. ROCEPHIN [Suspect]
     Indication: LYME DISEASE
     Dosage: IV
     Route: 042
     Dates: start: 20080122, end: 20080201
  3. INFLANEFRAN /00770701/ [Suspect]
     Indication: IRIDOCYCLITIS
     Dosage: IOC
     Route: 031
     Dates: start: 20080122
  4. URBASON [Suspect]
     Indication: IRIDOCYCLITIS
     Dosage: 375 MG 1/D IV
     Route: 042
     Dates: start: 20080122

REACTIONS (1)
  - IRIDOCYCLITIS [None]
